FAERS Safety Report 22324790 (Version 2)
Quarter: 2023Q2

REPORT INFORMATION
  Report Type: Spontaneous
  Country: CA (occurrence: CA)
  Receive Date: 20230516
  Receipt Date: 20230519
  Transmission Date: 20230721
  Serious: Yes (Other)
  Sender: FDA-Public Use
  Company Number: CA-PFIZER INC-202300188686

PATIENT
  Age: 56 Year
  Sex: Female

DRUGS (7)
  1. METHOTREXATE SODIUM [Suspect]
     Active Substance: METHOTREXATE SODIUM
     Indication: Rheumatoid arthritis
     Dosage: (IF PATIENT IS NOT FEELING WELL)
  2. METHOTREXATE SODIUM [Suspect]
     Active Substance: METHOTREXATE SODIUM
     Dosage: 25 MG, WEEKLY
     Route: 048
  3. DICLOFENAC [Concomitant]
     Active Substance: DICLOFENAC
     Dosage: UNK
  4. FOLIC ACID [Concomitant]
     Active Substance: FOLIC ACID
     Dosage: UNK
  5. CEFIXIME [Concomitant]
     Active Substance: CEFIXIME
     Dosage: UNK, AS NEEDED
  6. LYRICA [Concomitant]
     Active Substance: PREGABALIN
     Dosage: UNK
  7. NEXIUM I.V. [Concomitant]
     Active Substance: ESOMEPRAZOLE SODIUM
     Dosage: UNK, AS NEEDED

REACTIONS (3)
  - Jaw disorder [Unknown]
  - Joint swelling [Not Recovered/Not Resolved]
  - Tender joint count [Not Recovered/Not Resolved]

NARRATIVE: CASE EVENT DATE: 20230101
